FAERS Safety Report 8457393-8 (Version None)
Quarter: 2012Q2

REPORT INFORMATION
  Report Type: 
  Country: None (occurrence: None)
  Receive Date: 20120621
  Receipt Date: 20120614
  Transmission Date: 20120825
  Serious: Yes (Other)
  Sender: FDA-Public Use
  Company Number: AT-FRI-1000031489

PATIENT
  Sex: Female

DRUGS (12)
  1. MILNACIPRAN [Suspect]
     Dosage: 25 MG
     Dates: start: 20120218, end: 20120220
  2. VENLAFAXINE HCL [Suspect]
     Indication: DEPRESSION
     Dosage: 225 MG
     Route: 048
     Dates: start: 20110924, end: 20120213
  3. VENLAFAXINE HCL [Suspect]
     Dosage: 150 MG
     Route: 048
     Dates: start: 20120214, end: 20120219
  4. VENLAFAXINE HCL [Suspect]
     Dosage: 300 MG
     Route: 048
     Dates: start: 20120221, end: 20120223
  5. TRAZODONE HCL [Concomitant]
     Dates: start: 20110923, end: 20120227
  6. SEROQUEL [Concomitant]
     Dates: start: 20120213, end: 20120222
  7. SOLIAN [Concomitant]
     Dates: start: 20110923, end: 20120213
  8. MILNACIPRAN [Suspect]
     Dosage: 50 MG
     Dates: start: 20120215, end: 20120217
  9. ALPRAZOLAM [Concomitant]
     Dates: start: 20120210
  10. VENLAFAXINE HCL [Suspect]
     Dosage: 225 MG
     Route: 048
     Dates: start: 20120220, end: 20120220
  11. ALPRAZOLAM [Concomitant]
     Dates: start: 20120206, end: 20120209
  12. SEROQUEL [Concomitant]
     Dates: start: 20120223, end: 20120225

REACTIONS (3)
  - NAUSEA [None]
  - RESTLESSNESS [None]
  - TREMOR [None]
